FAERS Safety Report 8394786 (Version 4)
Quarter: 2013Q1

REPORT INFORMATION
  Report Type: Spontaneous
  Country: US (occurrence: US)
  Receive Date: 20120207
  Receipt Date: 20130115
  Transmission Date: 20140127
  Serious: Yes (Hospitalization, Other)
  Sender: FDA-Public Use
  Company Number: US-MERCK-1202USA01122

PATIENT
  Sex: 0

DRUGS (9)
  1. FOSAMAX PLUS D [Suspect]
     Indication: OSTEOPENIA
     Dosage: 70 MG, QW
     Route: 048
     Dates: start: 200404, end: 201002
  2. VITAMINS (UNSPECIFIED) [Concomitant]
     Indication: PRODUCT USED FOR UNKNOWN INDICATION
     Dosage: UNK, QD
     Dates: start: 2002
  3. CALCIUM (UNSPECIFIED) [Concomitant]
     Indication: PRODUCT USED FOR UNKNOWN INDICATION
     Dosage: UNK, QD
     Dates: start: 2002
  4. CHOLECALCIFEROL [Concomitant]
     Indication: PRODUCT USED FOR UNKNOWN INDICATION
     Dosage: UNK, QD
     Dates: start: 2002
  5. CYANOCOBALAMIN [Concomitant]
     Indication: PRODUCT USED FOR UNKNOWN INDICATION
     Dosage: UNK, QD
     Dates: start: 2002
  6. DIMETHYL SULFONE [Concomitant]
     Indication: PRODUCT USED FOR UNKNOWN INDICATION
     Dosage: UNK, QD
     Dates: start: 2002
  7. UBIDECARENONE [Concomitant]
     Indication: PRODUCT USED FOR UNKNOWN INDICATION
     Dosage: UNK, QD
     Dates: start: 2002
  8. PREVACID [Concomitant]
     Indication: PRODUCT USED FOR UNKNOWN INDICATION
     Dosage: UNK
     Dates: start: 1999, end: 2011
  9. SYNTHROID [Concomitant]
     Indication: HYPOTHYROIDISM
     Dosage: UNK
     Dates: start: 1996

REACTIONS (43)
  - Femur fracture [Recovered/Resolved]
  - Open reduction of fracture [Recovered/Resolved]
  - Knee arthroplasty [Unknown]
  - Cholecystectomy [Unknown]
  - Neoplasm malignant [Unknown]
  - Fall [Unknown]
  - Knee arthroplasty [Unknown]
  - Dupuytren^s contracture operation [Recovering/Resolving]
  - Fall [Unknown]
  - Reflux laryngitis [Unknown]
  - Type 2 diabetes mellitus [Unknown]
  - Adverse event [Unknown]
  - Rheumatoid arthritis [Unknown]
  - Osteoporosis [Not Recovered/Not Resolved]
  - Osteoarthritis [Unknown]
  - Carpal tunnel syndrome [Unknown]
  - Cataract operation [Unknown]
  - Trigger finger [Unknown]
  - Carpal tunnel decompression [Unknown]
  - Tendon sheath incision [Unknown]
  - Anxiety [Unknown]
  - Depression [Unknown]
  - Sleep apnoea syndrome [Unknown]
  - Hysterectomy [Unknown]
  - Carpal tunnel decompression [Unknown]
  - Tendon sheath incision [Unknown]
  - Tendon sheath incision [Recovering/Resolving]
  - Dupuytren^s contracture [Recovering/Resolving]
  - Trigger finger [Recovering/Resolving]
  - Plantar fasciitis [Unknown]
  - Cataract [Unknown]
  - Acute sinusitis [Unknown]
  - Bronchitis [Unknown]
  - Intervertebral disc disorder [Unknown]
  - Chronic sinusitis [Unknown]
  - Precerebral artery occlusion [Unknown]
  - Acne [Unknown]
  - Ligament sprain [Unknown]
  - Acute sinusitis [Unknown]
  - Open angle glaucoma [Unknown]
  - Iodine allergy [Unknown]
  - Hypersensitivity [Unknown]
  - Drug hypersensitivity [Unknown]
